FAERS Safety Report 5029788-6 (Version None)
Quarter: 2006Q2

REPORT INFORMATION
  Report Type: 
  Country: None (occurrence: None)
  Receive Date: 20060620
  Receipt Date: 20050309
  Transmission Date: 20061013
  Serious: Yes (Hospitalization, Disabling)
  Sender: FDA-Public Use
  Company Number: US-ROCHE-398241

PATIENT
  Age: 16 Year
  Sex: Male
  Weight: 90 kg

DRUGS (3)
  1. ACCUTANE [Suspect]
     Route: 048
     Dates: start: 19970120
  2. ACCUTANE [Suspect]
     Route: 048
     Dates: start: 19980723, end: 19980819
  3. ACCUTANE [Suspect]
     Route: 048
     Dates: start: 19980819

REACTIONS (33)
  - ABDOMINAL PAIN [None]
  - ACUTE TONSILLITIS [None]
  - AFFECT LABILITY [None]
  - AGGRESSION [None]
  - AGITATION [None]
  - ANGER [None]
  - ANKLE FRACTURE [None]
  - ARTHRALGIA [None]
  - BIPOLAR DISORDER [None]
  - BIPOLAR I DISORDER [None]
  - BLOOD TRIGLYCERIDES INCREASED [None]
  - CELLULITIS [None]
  - CONCUSSION [None]
  - DELIRIUM [None]
  - DELUSION [None]
  - DEPRESSION [None]
  - GASTROINTESTINAL DISORDER [None]
  - HEADACHE [None]
  - IMPULSE-CONTROL DISORDER [None]
  - IMPULSIVE BEHAVIOUR [None]
  - LOSS OF CONSCIOUSNESS [None]
  - MAJOR DEPRESSION [None]
  - OVERDOSE [None]
  - PERITONSILLAR ABSCESS [None]
  - PERSONALITY DISORDER [None]
  - POLLAKIURIA [None]
  - ROAD TRAFFIC ACCIDENT [None]
  - SHOULDER PAIN [None]
  - SOMNOLENCE [None]
  - SUICIDAL IDEATION [None]
  - SUICIDE ATTEMPT [None]
  - THIRST [None]
  - VIRAL INFECTION [None]
